FAERS Safety Report 6907033-1 (Version None)
Quarter: 2010Q3

REPORT INFORMATION
  Report Type: 
  Country: None (occurrence: None)
  Receive Date: 20100802
  Receipt Date: 20100716
  Transmission Date: 20110219
  Serious: Yes (Hospitalization, Other)
  Sender: FDA-Public Use
  Company Number: A-NJ2010-38162

PATIENT
  Age: 54 Year
  Sex: Female

DRUGS (13)
  1. TRACLEER [Suspect]
     Indication: PULMONARY ARTERIAL HYPERTENSION
     Dosage: 125 MG, BID, ORAL; 62.5 MG, BID, ORAL
     Route: 048
     Dates: start: 20060801, end: 20060901
  2. TRACLEER [Suspect]
     Indication: PULMONARY ARTERIAL HYPERTENSION
     Dosage: 125 MG, BID, ORAL; 62.5 MG, BID, ORAL
     Route: 048
     Dates: start: 20060901, end: 20100712
  3. TREPROSTINIL (TREPROSTINIL) [Suspect]
  4. WARFARIN SODIUM [Suspect]
  5. REVATIO [Concomitant]
  6. FUROSEMIDE [Concomitant]
  7. SPIRONOLACTONE [Concomitant]
  8. ACETAMINOPHEN [Concomitant]
  9. ASCORBIC ACID [Concomitant]
  10. DIGOXIN [Concomitant]
  11. FLUTICASONE (FLUTICASONE PROPIONATE) [Concomitant]
  12. OXYMETAZOLINE (OXYMETAZOLINE) [Concomitant]
  13. TIOTROPIUM (TIOTROPIUM) [Concomitant]

REACTIONS (12)
  - ABDOMINAL DISTENSION [None]
  - ALANINE AMINOTRANSFERASE INCREASED [None]
  - ANAEMIA [None]
  - ASPARTATE AMINOTRANSFERASE INCREASED [None]
  - BLOOD ALKALINE PHOSPHATASE INCREASED [None]
  - DYSPNOEA [None]
  - FLUID OVERLOAD [None]
  - HYPOTENSION [None]
  - INTERNATIONAL NORMALISED RATIO INCREASED [None]
  - LIVER FUNCTION TEST ABNORMAL [None]
  - OCCULT BLOOD POSITIVE [None]
  - SYNCOPE [None]
